FAERS Safety Report 4388491-6 (Version None)
Quarter: 2004Q2

REPORT INFORMATION
  Report Type: 
  Country: None (occurrence: None)
  Receive Date: 20040624
  Receipt Date: 20040610
  Transmission Date: 20050107
  Serious: Yes (Hospitalization)
  Sender: FDA-Public Use
  Company Number: JP-JNJFOC-20040603400

PATIENT
  Age: 69 Year
  Sex: Male

DRUGS (4)
  1. REMICADE [Suspect]
     Indication: RHEUMATOID ARTHRITIS
     Dosage: 1 IN 1 AS NECESSARY, INTRAVENOUS DRIP
     Route: 041
     Dates: start: 20040428, end: 20040428
  2. RHEUMATREX [Suspect]
     Dosage: 8 MG, IN 1 WEEK, ORAL
     Route: 048
  3. PREDONINE (PREDNISOLONE) UNSPECIFIED [Suspect]
  4. VOLTAREN [Concomitant]

REACTIONS (7)
  - ANOREXIA [None]
  - BACTERIAL INFECTION [None]
  - C-REACTIVE PROTEIN INCREASED [None]
  - DRUG INTERACTION [None]
  - PYOTHORAX [None]
  - TREATMENT NONCOMPLIANCE [None]
  - TUBERCULOSIS [None]
